FAERS Safety Report 7953762-0 (Version None)
Quarter: 2011Q4

REPORT INFORMATION
  Report Type: 
  Country: None (occurrence: None)
  Receive Date: 20111129
  Receipt Date: 20111118
  Transmission Date: 20120403
  Serious: Yes (Other)
  Sender: FDA-Public Use
  Company Number: 2010US001172

PATIENT
  Age: 19 Year
  Sex: Male

DRUGS (12)
  1. MYCAMINE [Suspect]
     Indication: CANDIDIASIS
     Dosage: 100MG, TOTAL DOSE, IV NOS
     Route: 042
  2. IMMUNE GLOBULIN INTRAVENOUS (HUMAN) [Concomitant]
  3. ALBUTEROL [Concomitant]
  4. CALCIUM GLUCONATE [Concomitant]
  5. ONDANSETRON [Concomitant]
  6. FENTANYL [Concomitant]
  7. INSULIN [Concomitant]
  8. FUROSEMIDE [Concomitant]
  9. PROPOFOL [Concomitant]
  10. LEVOFLOXACIN [Concomitant]
  11. BACITRACIN (BACITRACIN) OINTMENT [Concomitant]
  12. VASOPRESSORS [Concomitant]

REACTIONS (1)
  - THROMBOTIC THROMBOCYTOPENIC PURPURA [None]
